FAERS Safety Report 19766155 (Version 2)
Quarter: 2021Q3

REPORT INFORMATION
  Report Type: Other
  Country: US (occurrence: US)
  Receive Date: 20210831
  Receipt Date: 20210923
  Transmission Date: 20211014
  Serious: No
  Sender: FDA-Public Use
  Company Number: US-NEUROCRINE BIOSCIENCES INC.-2021NBI04604

PATIENT

DRUGS (2)
  1. INGREZZA [Suspect]
     Active Substance: VALBENAZINE
     Dosage: 60 MILLIGRAM, QD
     Route: 048
     Dates: start: 2021
  2. INGREZZA [Suspect]
     Active Substance: VALBENAZINE
     Indication: TARDIVE DYSKINESIA
     Dosage: 40 MILLIGRAM
     Route: 048
     Dates: start: 20210722

REACTIONS (7)
  - Therapeutic product effect decreased [Unknown]
  - Dry mouth [Unknown]
  - Balance disorder [Unknown]
  - Asthenia [Unknown]
  - Constipation [Unknown]
  - Vision blurred [Unknown]
  - Insomnia [Unknown]

NARRATIVE: CASE EVENT DATE: 2021
